FAERS Safety Report 4284839-1 (Version None)
Quarter: 2004Q1

REPORT INFORMATION
  Report Type: 
  Country: None (occurrence: None)
  Receive Date: 20040204
  Receipt Date: 20040128
  Transmission Date: 20041129
  Serious: Yes (Other)
  Sender: FDA-Public Use
  Company Number: AU-BRISTOL-MYERS SQUIBB COMPANY-12489027

PATIENT
  Age: 7 Decade
  Sex: Female

DRUGS (3)
  1. AVAPRO [Suspect]
     Indication: HYPERTENSION
     Route: 048
  2. SOTACOR TABS [Suspect]
     Route: 048
  3. DIURETIC [Concomitant]

REACTIONS (2)
  - ABNORMAL DREAMS [None]
  - DIZZINESS [None]
